FAERS Safety Report 8777469 (Version 1)
Quarter: 2012Q4

REPORT INFORMATION
  Report Type: 
  Country: JP (occurrence: JP)
  Receive Date: 20120911
  Receipt Date: 20120911
  Transmission Date: 20130627
  Serious: Yes (Other)
  Sender: FDA-Public Use
  Company Number: JP-SANOFI-AVENTIS-2012SA065214

PATIENT

DRUGS (4)
  1. FLUOROURACIL [Suspect]
     Indication: GASTRIC CANCER
     Route: 040
  2. FLUOROURACIL [Suspect]
     Indication: GASTRIC CANCER
     Dosage: 46 hr continuous infusion
     Route: 042
  3. OXALIPLATIN [Suspect]
     Indication: GASTRIC CANCER
     Dosage: 2-h infusion
     Route: 042
  4. LEUCOVORIN [Suspect]
     Indication: GASTRIC CANCER
     Route: 042

REACTIONS (2)
  - Hyperammonaemia [Unknown]
  - Hepatic failure [Unknown]
